FAERS Safety Report 24729160 (Version 4)
Quarter: 2025Q2

REPORT INFORMATION
  Report Type: Report from Study
  Country: DE (occurrence: DE)
  Receive Date: 20241213
  Receipt Date: 20250512
  Transmission Date: 20250716
  Serious: Yes (Hospitalization)
  Sender: TAKEDA
  Company Number: DE-TAKEDA-2024TUS100523

PATIENT
  Age: 85 Year
  Sex: Female

DRUGS (16)
  1. TEDUGLUTIDE [Suspect]
     Active Substance: TEDUGLUTIDE
     Indication: Short-bowel syndrome
     Dosage: 2.8 MILLIGRAM, QD
     Dates: start: 20210213
  2. TEDUGLUTIDE [Suspect]
     Active Substance: TEDUGLUTIDE
  3. TEDUGLUTIDE [Suspect]
     Active Substance: TEDUGLUTIDE
  4. TEDUGLUTIDE [Suspect]
     Active Substance: TEDUGLUTIDE
  5. INNOHEP [Concomitant]
     Active Substance: TINZAPARIN SODIUM
     Dosage: 120 INTERNATIONAL UNIT, QD
     Dates: start: 20240925
  6. Dropizol [Concomitant]
     Dosage: 10 GTT DROPS, BID
     Dates: start: 20240925
  7. OPIUM TINCTURE [Concomitant]
     Active Substance: MORPHINE
     Dosage: 19 GTT DROPS, BID
     Dates: start: 20220914, end: 20240924
  8. ZOPICLONE [Concomitant]
     Active Substance: ZOPICLONE
     Dosage: 3.75 MILLIGRAM, QD
     Dates: start: 20220914
  9. VITAMIN E [Concomitant]
     Active Substance: .ALPHA.-TOCOPHEROL
     Dosage: UNK UNK, Q4WEEKS
     Dates: start: 2020, end: 20220913
  10. VITAMIN D [Concomitant]
     Active Substance: VITAMIN D NOS
     Dosage: UNK, Q4WEEKS
     Dates: start: 2020, end: 20220913
  11. ESOMEPRAZOLE [Concomitant]
     Active Substance: ESOMEPRAZOLE
  12. METAMIZOLE [Concomitant]
     Active Substance: METAMIZOLE
     Dosage: 30 GTT DROPS, TID
     Dates: start: 2020
  13. Riopan gel [Concomitant]
     Indication: Abdominal discomfort
     Dosage: 10 MILLILITER, TID
     Dates: start: 20240925
  14. TORSEMIDE [Concomitant]
     Active Substance: TORSEMIDE
     Dosage: 2.5 MILLIGRAM, QD
     Dates: start: 2020
  15. Vigantol [Concomitant]
     Indication: Vitamin D deficiency
     Dosage: 7 GTT DROPS, QD
     Dates: start: 20220914
  16. MIRTAZAPINE [Concomitant]
     Active Substance: MIRTAZAPINE
     Dosage: 7.5 MILLIGRAM, QD
     Dates: start: 20220914

REACTIONS (3)
  - Jugular vein thrombosis [Recovered/Resolved]
  - Device dislocation [Recovered/Resolved]
  - Weight decreased [Recovered/Resolved]

NARRATIVE: CASE EVENT DATE: 20220914
